FAERS Safety Report 21137521 (Version 1)
Quarter: 2022Q3

REPORT INFORMATION
  Report Type: Spontaneous
  Country: US (occurrence: None)
  Receive Date: 20220727
  Receipt Date: 20220727
  Transmission Date: 20221026
  Serious: No
  Sender: FDA-Public Use
  Company Number: None

PATIENT
  Age: 61 Year
  Sex: Male
  Weight: 119.79 kg

DRUGS (10)
  1. CAPECITABINE [Suspect]
     Active Substance: CAPECITABINE
     Indication: Colon cancer
     Dosage: OTHER QUANTITY : 1500-2000MG;?FREQUENCY : TWICE A DAY;?
     Route: 048
  2. UMECLIDINIUM BROMIDE\VILANTEROL TRIFENATATE [Concomitant]
     Active Substance: UMECLIDINIUM BROMIDE\VILANTEROL TRIFENATATE
  3. ATIVAN [Concomitant]
     Active Substance: LORAZEPAM
  4. ATORVASTATIN [Concomitant]
     Active Substance: ATORVASTATIN
  5. BASAGLAR [Concomitant]
     Active Substance: INSULIN GLARGINE
  6. COMBIVENT [Concomitant]
     Active Substance: ALBUTEROL SULFATE\IPRATROPIUM BROMIDE
  7. LISINOPRIL [Concomitant]
     Active Substance: LISINOPRIL
  8. METOPROLOL [Concomitant]
     Active Substance: METOPROLOL
  9. NOVOLOG [Concomitant]
     Active Substance: INSULIN ASPART
  10. OXYCODONE [Concomitant]
     Active Substance: OXYCODONE

REACTIONS (1)
  - Disease recurrence [None]
